FAERS Safety Report 20078463 (Version 1)
Quarter: 2021Q4

REPORT INFORMATION
  Report Type: Report from Study
  Country: US (occurrence: US)
  Receive Date: 20211117
  Receipt Date: 20211117
  Transmission Date: 20220304
  Serious: No
  Sender: FDA-Public Use
  Company Number: US-JNJFOC-20211108383

PATIENT
  Age: 53 Year
  Sex: Female

DRUGS (4)
  1. SELEXIPAG [Suspect]
     Active Substance: SELEXIPAG
     Indication: Pulmonary arterial hypertension
     Dosage: UPTRAVI 1400 MCG EVERY MORNING AND 1600 MCG EVERY EVENING
     Route: 048
     Dates: start: 20190202
  2. SELEXIPAG [Suspect]
     Active Substance: SELEXIPAG
     Dosage: UPTRAVI 1400 MCG EVERY MORNING AND 1600 MCG EVERY EVENING
     Route: 048
     Dates: start: 20190202
  3. SELEXIPAG [Suspect]
     Active Substance: SELEXIPAG
     Dosage: RESTART AT 600 MCG TWICE DAILY ON 11/1/21
     Route: 048
     Dates: start: 20211101
  4. MACITENTAN [Suspect]
     Active Substance: MACITENTAN
     Indication: Pulmonary arterial hypertension
     Route: 048
     Dates: start: 20190202

REACTIONS (2)
  - Product dose omission issue [Unknown]
  - Dyspnoea [Unknown]

NARRATIVE: CASE EVENT DATE: 20211001
